FAERS Safety Report 9216485 (Version 2)
Quarter: 2013Q2

REPORT INFORMATION
  Report Type: Spontaneous
  Country: US (occurrence: None)
  Receive Date: 20130320
  Receipt Date: 20130506
  Transmission Date: 20140414
  Serious: Yes (Hospitalization)
  Sender: FDA-Public Use
  Company Number: AMAG201300045

PATIENT
  Age: 45 Year
  Sex: Female
  Weight: 136.1 kg

DRUGS (4)
  1. FERAHEME [Suspect]
     Indication: IRON DEFICIENCY ANAEMIA
     Dosage: SINGLE
     Route: 042
     Dates: start: 20130221, end: 20130221
  2. FERAHEME [Suspect]
     Indication: MENORRHAGIA
     Dosage: SINGLE
     Route: 042
     Dates: start: 20130221, end: 20130221
  3. DEXLANSOPRAZOLE (DEXLANSOPRAZOLE) [Concomitant]
  4. TRIAMTERENE (TRIAMTERENE) [Concomitant]

REACTIONS (7)
  - Nausea [None]
  - Dizziness [None]
  - Vomiting [None]
  - Pain in extremity [None]
  - Hypoaesthesia [None]
  - Hypoaesthesia [None]
  - Thrombosis [None]
